FAERS Safety Report 11936087 (Version 2)
Quarter: 2016Q3

REPORT INFORMATION
  Report Type: Report from Study
  Country: US (occurrence: US)
  Receive Date: 20160121
  Receipt Date: 20160726
  Transmission Date: 20161109
  Serious: No
  Sender: FDA-Public Use
  Company Number: US-AMGEN-USASL2015131096

PATIENT
  Age: 65 Year
  Sex: Male

DRUGS (2)
  1. KYPROLIS [Suspect]
     Active Substance: CARFILZOMIB
     Indication: PLASMA CELL MYELOMA
     Dosage: 2 TIMES/WK
     Route: 065
     Dates: start: 201511
  2. REVLIMID [Concomitant]
     Active Substance: LENALIDOMIDE
     Dosage: UNK

REACTIONS (7)
  - Nasopharyngitis [Unknown]
  - Cough [Recovered/Resolved]
  - Unevaluable event [Unknown]
  - Fatigue [Unknown]
  - Hypoacusis [Unknown]
  - Tongue disorder [Unknown]
  - Red blood cell count decreased [Unknown]

NARRATIVE: CASE EVENT DATE: 2015
